FAERS Safety Report 7257285-6 (Version None)
Quarter: 2011Q1

REPORT INFORMATION
  Report Type: 
  Country: None (occurrence: None)
  Receive Date: 20110129
  Receipt Date: 20100719
  Transmission Date: 20110831
  Serious: No
  Sender: FDA-Public Use
  Company Number: US-ABBOTT-10P-163-0658743-00

PATIENT
  Sex: Male
  Weight: 59.02 kg

DRUGS (4)
  1. HUMIRA [Suspect]
     Indication: CROHN'S DISEASE
     Route: 058
     Dates: start: 20100628
  2. LISINOPRIL [Concomitant]
     Indication: HYPERTENSION
  3. CARBEDILOL [Concomitant]
     Indication: HYPERTENSION
  4. AMLODIPINE [Concomitant]
     Indication: HYPERTENSION

REACTIONS (2)
  - PAIN [None]
  - PARAESTHESIA [None]
